FAERS Safety Report 8531805 (Version 10)
Quarter: 2013Q1

REPORT INFORMATION
  Report Type: Spontaneous
  Country: PR (occurrence: PR)
  Receive Date: 20120426
  Receipt Date: 20130125
  Transmission Date: 20140127
  Serious: Yes (Other)
  Sender: FDA-Public Use
  Company Number: PR-ABBOTT-12P-131-0928502-00

PATIENT
  Age: 42 Year
  Sex: Female
  Weight: 74.91 kg

DRUGS (12)
  1. HUMIRA 40 MG/0.8 ML PEN [Suspect]
     Indication: RHEUMATOID ARTHRITIS
     Route: 058
     Dates: end: 20120324
  2. HUMIRA 40 MG/0.8 ML PEN [Suspect]
     Route: 058
     Dates: end: 20120629
  3. HUMIRA 40 MG/0.8 ML PEN [Suspect]
     Route: 058
     Dates: end: 20120824
  4. HUMIRA 40 MG/0.8 ML PEN [Suspect]
     Route: 058
     Dates: start: 201211, end: 201212
  5. SYNTHROID [Concomitant]
     Indication: THYROID DISORDER
     Dosage: 1 TABLET DAILY ON MONDAY TO FRIDAY
     Route: 048
     Dates: start: 20120120
  6. SYNTHROID [Concomitant]
     Dosage: 1 TABLET DAILY ON SATURDAY AND SUNDAY
     Route: 048
     Dates: start: 20120402
  7. SYNTHROID [Concomitant]
  8. CYMBALTA [Concomitant]
     Indication: PRODUCT USED FOR UNKNOWN INDICATION
     Dosage: 1 TABLET AT BEDTIME
     Route: 048
     Dates: start: 2008
  9. CATAFLAM [Concomitant]
     Indication: PRODUCT USED FOR UNKNOWN INDICATION
     Dosage: 1 TABLET TWICE DAILY
     Route: 048
     Dates: start: 20120320, end: 20120409
  10. CALCIUM [Concomitant]
     Indication: RHEUMATOID ARTHRITIS
     Dosage: 1 TABLET DAILY
     Route: 048
     Dates: start: 2010
  11. VITAMIN D [Concomitant]
     Indication: RHEUMATOID ARTHRITIS
     Dosage: 1 TABLET DAILY
     Route: 048
     Dates: start: 2010
  12. NEURONTIN [Concomitant]
     Indication: PRODUCT USED FOR UNKNOWN INDICATION
     Route: 048
     Dates: start: 20120320, end: 20120409

REACTIONS (18)
  - Breast reconstruction [Recovered/Resolved]
  - Gastroenteritis viral [Recovered/Resolved]
  - Food poisoning [Recovered/Resolved]
  - Vomiting [Recovered/Resolved]
  - Somnolence [Recovered/Resolved]
  - Discomfort [Recovered/Resolved]
  - Nasal congestion [Recovered/Resolved]
  - Alanine aminotransferase increased [Recovered/Resolved]
  - Aspartate aminotransferase increased [Recovered/Resolved]
  - Haematoma [Recovered/Resolved]
  - Fall [Recovered/Resolved]
  - Joint injury [Recovered/Resolved]
  - Contusion [Recovered/Resolved]
  - Drug ineffective [Unknown]
  - Breast operation [Recovered/Resolved]
  - Hepatic enzyme increased [Not Recovered/Not Resolved]
  - Pain [Unknown]
  - Inflammation [Unknown]
